FAERS Safety Report 9149265 (Version 2)
Quarter: 2013Q1

REPORT INFORMATION
  Report Type: Spontaneous
  Country: JP (occurrence: JP)
  Receive Date: 20130308
  Receipt Date: 20130321
  Transmission Date: 20140127
  Serious: Yes (Death)
  Sender: FDA-Public Use
  Company Number: JP-NAPPMUNDI-GBR-2013-0013339

PATIENT
  Age: 90 Year
  Sex: Male

DRUGS (3)
  1. OXYCODONE HYDROCHLORIDE [Suspect]
     Indication: DYSPNOEA
     Dosage: 7.5 MG, DAILY
     Route: 042
     Dates: start: 201302
  2. SERENACE [Concomitant]
     Indication: DYSPNOEA
     Dosage: 2.5 MG, DAILY
  3. DORMICUM                           /00634101/ [Concomitant]
     Indication: DYSPNOEA
     Dosage: 15 MG, DAILY

REACTIONS (3)
  - Off label use [Unknown]
  - Renal failure chronic [Fatal]
  - Aortic valve atresia [Fatal]
